FAERS Safety Report 16935737 (Version 1)
Quarter: 2019Q4

REPORT INFORMATION
  Report Type: Report from Study
  Country: None (occurrence: BR)
  Receive Date: 20191018
  Receipt Date: 20191018
  Transmission Date: 20200122
  Serious: Yes (Other)
  Sender: FDA-Public Use
  Company Number: BR-ABBVIE-19K-020-2966336-00

PATIENT
  Sex: Female

DRUGS (1)
  1. HUMIRA [Suspect]
     Active Substance: ADALIMUMAB
     Indication: RHEUMATOID ARTHRITIS
     Route: 058
     Dates: start: 20160419

REACTIONS (8)
  - Limb injury [Unknown]
  - Daydreaming [Unknown]
  - Memory impairment [Unknown]
  - Bedridden [Unknown]
  - Fall [Recovered/Resolved]
  - Clavicle fracture [Unknown]
  - Feeling abnormal [Unknown]
  - Swelling [Unknown]
